FAERS Safety Report 4332407-5 (Version None)
Quarter: 2004Q2

REPORT INFORMATION
  Report Type: 
  Country: None (occurrence: None)
  Receive Date: 20040401
  Receipt Date: 20040322
  Transmission Date: 20050107
  Serious: Yes (Life-Threatening, Hospitalization)
  Sender: FDA-Public Use
  Company Number: 2004-02-1500

PATIENT
  Age: 74 Year
  Sex: Female
  Weight: 70 kg

DRUGS (3)
  1. TEMODAL [Suspect]
     Indication: OLIGODENDROGLIOMA
     Dosage: 350 MG/CYCLE ORAL
     Route: 048
     Dates: start: 20040126, end: 20040131
  2. DEPAKENE [Suspect]
     Indication: EPILEPSY
     Dosage: 50 MG TID
     Dates: start: 20030701, end: 20040224
  3. PREDNISONE [Concomitant]

REACTIONS (5)
  - ANAEMIA [None]
  - DRUG INTERACTION [None]
  - FEBRILE BONE MARROW APLASIA [None]
  - NEUTROPENIA [None]
  - THROMBOCYTOPENIA [None]
